FAERS Safety Report 7911232-X (Version None)
Quarter: 2011Q4

REPORT INFORMATION
  Report Type: 
  Country: None (occurrence: None)
  Receive Date: 20111108
  Receipt Date: 20111101
  Transmission Date: 20120403
  Serious: Yes (Hospitalization, Other)
  Sender: FDA-Public Use
  Company Number: 2009SP023496

PATIENT
  Age: 25 Year
  Sex: Female
  Weight: 90.7194 kg

DRUGS (2)
  1. COUMADIN [Suspect]
     Indication: THROMBOSIS PROPHYLAXIS
     Dates: start: 20060901, end: 20061005
  2. NUVARING [Suspect]
     Indication: CONTRACEPTION
     Dosage: VAG
     Route: 067
     Dates: start: 20060601, end: 20060801

REACTIONS (14)
  - CANDIDIASIS [None]
  - MIGRAINE [None]
  - OVARIAN CYST [None]
  - PNEUMONIA [None]
  - HYPOALBUMINAEMIA [None]
  - HYPERGLOBULINAEMIA [None]
  - BREAST CELLULITIS [None]
  - BREAST NECROSIS [None]
  - PULMONARY EMBOLISM [None]
  - THROMBOSIS [None]
  - MASTITIS [None]
  - PULMONARY INFARCTION [None]
  - DRUG HYPERSENSITIVITY [None]
  - BREAST HAEMATOMA [None]
